FAERS Safety Report 6122169-3 (Version None)
Quarter: 2009Q1

REPORT INFORMATION
  Report Type: 
  Country: None (occurrence: None)
  Receive Date: 20090318
  Receipt Date: 20090310
  Transmission Date: 20090719
  Serious: Yes (Hospitalization)
  Sender: FDA-Public Use
  Company Number: PHHY2009MX08165

PATIENT
  Age: 76 Year
  Sex: Male

DRUGS (3)
  1. ZELMAC [Suspect]
     Indication: IRRITABLE BOWEL SYNDROME
     Dosage: 6 MG, 2 TABLET PER DAY
     Route: 048
     Dates: start: 20080101, end: 20090101
  2. LEVODOPA [Concomitant]
     Indication: PARKINSON'S DISEASE
  3. ASILEX [Concomitant]

REACTIONS (5)
  - ABASIA [None]
  - ACCIDENT [None]
  - FALL [None]
  - HIP FRACTURE [None]
  - SURGERY [None]
